FAERS Safety Report 4569333-2 (Version None)
Quarter: 2005Q1

REPORT INFORMATION
  Report Type: 
  Country: None (occurrence: None)
  Receive Date: 20050203
  Receipt Date: 20050128
  Transmission Date: 20050727
  Serious: Yes (Hospitalization)
  Sender: FDA-Public Use
  Company Number: US-GLAXOSMITHKLINE-A0542840A

PATIENT
  Age: 50 Year
  Sex: Female

DRUGS (5)
  1. WELLBUTRIN [Suspect]
     Indication: DEPRESSION
     Route: 048
  2. ZOLOFT [Concomitant]
  3. NEURONTIN [Concomitant]
  4. ZYRTEC [Concomitant]
  5. SYNTHROID [Concomitant]

REACTIONS (4)
  - COMA [None]
  - HALLUCINATION [None]
  - RENAL FAILURE [None]
  - SOMNOLENCE [None]
